FAERS Safety Report 5296235-9 (Version None)
Quarter: 2007Q2

REPORT INFORMATION
  Report Type: 
  Country: None (occurrence: None)
  Receive Date: 20070413
  Receipt Date: 20070404
  Transmission Date: 20071010
  Serious: Yes (Hospitalization)
  Sender: FDA-Public Use
  Company Number: FR-GLAXOSMITHKLINE-B0465941A

PATIENT
  Age: 86 Year
  Sex: Male
  Weight: 70 kg

DRUGS (5)
  1. DEROXAT [Suspect]
     Indication: DRUG USE FOR UNKNOWN INDICATION
     Route: 048
     Dates: start: 20070218
  2. OMNIPAQUE 140 [Suspect]
     Indication: COMPUTERISED TOMOGRAM
     Route: 042
     Dates: start: 20070226, end: 20070226
  3. TIENAM [Suspect]
     Route: 042
     Dates: start: 20070227, end: 20070228
  4. VANCOMYCIN [Suspect]
     Route: 042
     Dates: start: 20070227, end: 20070228
  5. IOBITRIDOL [Suspect]
     Indication: COMPUTERISED TOMOGRAM
     Route: 042
     Dates: start: 20070303, end: 20070303

REACTIONS (7)
  - BRONCHIAL OBSTRUCTION [None]
  - GENERAL PHYSICAL HEALTH DETERIORATION [None]
  - INFECTION [None]
  - INFLAMMATION [None]
  - PURPURA [None]
  - SKIN OEDEMA [None]
  - TOXIC SKIN ERUPTION [None]
